FAERS Safety Report 9364903 (Version 3)
Quarter: 2013Q3

REPORT INFORMATION
  Report Type: Spontaneous
  Country: JP (occurrence: JP)
  Receive Date: 20130624
  Receipt Date: 20130910
  Transmission Date: 20140515
  Serious: Yes (Hospitalization)
  Sender: FDA-Public Use
  Company Number: JP-GLAXOSMITHKLINE-B0901710A

PATIENT
  Age: 75 Year
  Sex: Female

DRUGS (1)
  1. VALTREX [Suspect]
     Indication: HERPES ZOSTER
     Dosage: 500MG PER DAY
     Route: 048
     Dates: start: 20130615, end: 20130616

REACTIONS (5)
  - Cerebrovascular disorder [Unknown]
  - Brain stem infarction [Unknown]
  - Vertebral artery occlusion [Unknown]
  - Dyslalia [Recovering/Resolving]
  - Dizziness [Recovering/Resolving]
